FAERS Safety Report 4279088-7 (Version None)
Quarter: 2004Q1

REPORT INFORMATION
  Report Type: 
  Country: None (occurrence: None)
  Receive Date: 20040126
  Receipt Date: 20040120
  Transmission Date: 20041129
  Serious: Yes (Disabling)
  Sender: FDA-Public Use
  Company Number: WAES 0401GBR00175

PATIENT
  Age: 72 Year
  Sex: Female
  Weight: 94 kg

DRUGS (2)
  1. ACETAMINOPHEN [Concomitant]
     Indication: OSTEOARTHRITIS
     Route: 048
     Dates: start: 20010801
  2. VIOXX [Suspect]
     Indication: OSTEOARTHRITIS
     Route: 048
     Dates: start: 20010715, end: 20040107

REACTIONS (1)
  - GENITAL PRURITUS FEMALE [None]
